FAERS Safety Report 19185657 (Version 1)
Quarter: 2021Q2

REPORT INFORMATION
  Report Type: Spontaneous
  Country: US (occurrence: US)
  Receive Date: 20210427
  Receipt Date: 20210427
  Transmission Date: 20210717
  Serious: No
  Sender: FDA-Public Use
  Company Number: US-BRACCO-2021US00031

PATIENT
  Age: 75 Year
  Sex: Male

DRUGS (2)
  1. READI?CAT 2 [Suspect]
     Active Substance: BARIUM SULFATE
     Indication: COMPUTERISED TOMOGRAM
     Dosage: 1 BOTTLE, SINGLE
     Route: 048
     Dates: start: 20201013, end: 20201013
  2. READI?CAT 2 [Suspect]
     Active Substance: BARIUM SULFATE
     Indication: COMPUTERISED TOMOGRAM
     Dosage: 1 BOTTLE, SINGLE
     Route: 048
     Dates: start: 20201014, end: 20201014

REACTIONS (1)
  - Therapeutic response unexpected [Unknown]

NARRATIVE: CASE EVENT DATE: 20201014
